FAERS Safety Report 7994790-9 (Version None)
Quarter: 2011Q4

REPORT INFORMATION
  Report Type: 
  Country: None (occurrence: None)
  Receive Date: 20111220
  Receipt Date: 20111207
  Transmission Date: 20120403
  Serious: Yes (Other)
  Sender: FDA-Public Use
  Company Number: US-ROCHE-1020813

PATIENT

DRUGS (6)
  1. DOXORUBICIN HCL [Suspect]
     Indication: MANTLE CELL LYMPHOMA
  2. DEXAMETHASONE [Suspect]
     Indication: MANTLE CELL LYMPHOMA
  3. CYCLOPHOSPHAMIDE [Suspect]
     Indication: MANTLE CELL LYMPHOMA
  4. VINCRISTINE [Suspect]
     Indication: MANTLE CELL LYMPHOMA
  5. PREDNISOLONE [Suspect]
     Indication: MANTLE CELL LYMPHOMA
  6. MABTHERA [Suspect]
     Indication: MANTLE CELL LYMPHOMA

REACTIONS (1)
  - MYELODYSPLASTIC SYNDROME [None]
